FAERS Safety Report 7733561-5 (Version None)
Quarter: 2011Q3

REPORT INFORMATION
  Report Type: 
  Country: None (occurrence: None)
  Receive Date: 20110907
  Receipt Date: 20110824
  Transmission Date: 20111222
  Serious: Yes (Other)
  Sender: FDA-Public Use
  Company Number: US-ELI_LILLY_AND_COMPANY-US201108007652

PATIENT
  Sex: Female

DRUGS (5)
  1. CYMBALTA [Suspect]
     Indication: HEADACHE
     Dosage: 4 DF, EACH MORNING
  2. KLONOPIN [Concomitant]
  3. LEXAPRO [Concomitant]
  4. FIORICET [Concomitant]
     Indication: MIGRAINE
  5. REGLAN [Concomitant]

REACTIONS (3)
  - TONGUE DISORDER [None]
  - DEPRESSION [None]
  - OFF LABEL USE [None]
